FAERS Safety Report 9956706 (Version 1)
Quarter: 2014Q1

REPORT INFORMATION
  Report Type: Report from Study
  Country: US (occurrence: US)
  Receive Date: 20140304
  Receipt Date: 20140304
  Transmission Date: 20141002
  Serious: No
  Sender: FDA-Public Use
  Company Number: US-ABBVIE-13P-163-1092943-00

PATIENT
  Age: 84 Year
  Sex: Female

DRUGS (8)
  1. HUMIRA [Suspect]
     Indication: PSORIATIC ARTHROPATHY
     Dates: start: 20130218
  2. IRON [Concomitant]
     Indication: ANAEMIA
  3. IRON [Concomitant]
     Indication: LABORATORY TEST ABNORMAL
  4. FELODIPINE [Concomitant]
     Indication: BLOOD PRESSURE
  5. LEVOTHYROXINE [Concomitant]
     Indication: HYPOTHYROIDISM
  6. LEVOTHYROXINE [Concomitant]
     Indication: HYPOTHYROIDISM
  7. METHOTREXATE [Concomitant]
     Indication: PRODUCT USED FOR UNKNOWN INDICATION
  8. NABUMATONE [Concomitant]
     Indication: ARTHRITIS

REACTIONS (5)
  - Pruritus [Not Recovered/Not Resolved]
  - Pain of skin [Not Recovered/Not Resolved]
  - Psoriasis [Not Recovered/Not Resolved]
  - Injection site pain [Not Recovered/Not Resolved]
  - Drug ineffective [Not Recovered/Not Resolved]
